FAERS Safety Report 13549726 (Version 1)
Quarter: 2017Q2

REPORT INFORMATION
  Report Type: Spontaneous
  Country: None (occurrence: US)
  Receive Date: 20170515
  Receipt Date: 20170515
  Transmission Date: 20170830
  Serious: Yes (Hospitalization)
  Sender: FDA-Public Use
  Company Number: None

PATIENT
  Age: 47 Year
  Sex: Female

DRUGS (1)
  1. XELJANZ XR [Suspect]
     Active Substance: TOFACITINIB CITRATE
     Indication: RHEUMATOID ARTHRITIS
     Dosage: 1 TABLET DAILY BY MOUTH
     Route: 048
     Dates: start: 20170501

REACTIONS (3)
  - Breast mass [None]
  - Chest pain [None]
  - Drug dose omission [None]

NARRATIVE: CASE EVENT DATE: 20170511
